FAERS Safety Report 5016476-5 (Version None)
Quarter: 2006Q2

REPORT INFORMATION
  Report Type: 
  Country: None (occurrence: None)
  Receive Date: 20060602
  Receipt Date: 20060419
  Transmission Date: 20061013
  Serious: Yes (Other)
  Sender: FDA-Public Use
  Company Number: PHBS2006NZ05597

PATIENT
  Age: 39 Year
  Sex: Male

DRUGS (2)
  1. CLOZARIL [Suspect]
     Indication: SCHIZOPHRENIA
     Dosage: UNK, UNK
     Route: 048
     Dates: start: 19940314, end: 20060429
  2. CLOZARIL [Suspect]
     Dosage: RED. BY 50 MG EVERY 4 WEEKS
     Route: 048
     Dates: start: 20060430

REACTIONS (4)
  - AGRANULOCYTOSIS [None]
  - LYMPHOMA [None]
  - NEUTROPHIL COUNT DECREASED [None]
  - WHITE BLOOD CELL COUNT DECREASED [None]
